FAERS Safety Report 10874551 (Version 1)
Quarter: 2015Q1

REPORT INFORMATION
  Report Type: Spontaneous
  Country: US (occurrence: US)
  Receive Date: 20150227
  Receipt Date: 20150227
  Transmission Date: 20150721
  Serious: Yes (Congenital Anomaly, Other)
  Sender: FDA-Public Use
  Company Number: US-APOTEX-2015AP006969

PATIENT
  Age: 0 Day
  Sex: Female

DRUGS (2)
  1. PAXIL [Suspect]
     Active Substance: PAROXETINE HYDROCHLORIDE
     Dosage: 30 MG, UNK
  2. PAXIL [Suspect]
     Active Substance: PAROXETINE HYDROCHLORIDE
     Indication: PRODUCT USED FOR UNKNOWN INDICATION
     Dosage: 20 MG, UNK
     Route: 064
     Dates: start: 1998, end: 1998

REACTIONS (10)
  - Patellofemoral pain syndrome [Unknown]
  - Sever^s disease [Unknown]
  - Congenital multiplex arthrogryposis [Unknown]
  - Neck deformity [Unknown]
  - Limb deformity [Unknown]
  - Joint dislocation [Unknown]
  - Foetal exposure during pregnancy [Unknown]
  - Foot deformity [Unknown]
  - Muscular weakness [Unknown]
  - Arthropathy [Unknown]

NARRATIVE: CASE EVENT DATE: 19981109
